FAERS Safety Report 14305269 (Version 1)
Quarter: 2017Q4

REPORT INFORMATION
  Report Type: Spontaneous
  Country: JP (occurrence: JP)
  Receive Date: 20171219
  Receipt Date: 20171219
  Transmission Date: 20180321
  Serious: Yes (Hospitalization)
  Sender: FDA-Public Use
  Company Number: JP-OTSUKA-010898

PATIENT
  Age: 52 Year
  Sex: Female
  Weight: 45.3 kg

DRUGS (12)
  1. AMOBAN [Suspect]
     Active Substance: ZOPICLONE
     Indication: INSOMNIA
     Dosage: 7.5 MG, SINGLE
     Route: 048
     Dates: start: 20071123
  2. ABILIFY [Suspect]
     Active Substance: ARIPIPRAZOLE
     Dosage: 30 MG, QD
     Route: 048
     Dates: start: 20080718, end: 20090805
  3. DAIOKANZOTO [Concomitant]
     Active Substance: LICORICE ROOT EXTRACT\RHUBARB
     Indication: CONSTIPATION
     Dosage: 2 DF, TID
     Route: 048
     Dates: start: 20071123
  4. U PAN [Suspect]
     Active Substance: LORAZEPAM
     Indication: ANXIETY
     Dosage: 0.5 MG, QID
     Route: 048
     Dates: start: 20071123
  5. GLYCYRRHIZA EXTRACT [Concomitant]
     Active Substance: GLYCYRRHIZA EXTRACT
     Indication: PRODUCT USED FOR UNKNOWN INDICATION
     Dosage: EXTRACT,RHEUM PALMATUM.TABLET
     Route: 065
     Dates: start: 20071123
  6. ABILIFY [Suspect]
     Active Substance: ARIPIPRAZOLE
     Indication: SCHIZOPHRENIA
     Dosage: 18 MG, QD
     Route: 048
     Dates: start: 20071123, end: 20080508
  7. ABILIFY [Suspect]
     Active Substance: ARIPIPRAZOLE
     Dosage: 24 MG, QD
     Route: 048
     Dates: start: 20090806
  8. MAGMITT [Concomitant]
     Active Substance: MAGNESIUM OXIDE
     Indication: CONSTIPATION
     Dosage: 660 MG, BID
     Route: 048
     Dates: start: 20080509
  9. EVAMYL [Suspect]
     Active Substance: LORMETAZEPAM
     Indication: INSOMNIA
     Dosage: 1 MG, SINGLE
     Route: 048
     Dates: start: 20071123
  10. U PAN [Suspect]
     Active Substance: LORAZEPAM
     Indication: IRRITABILITY
  11. ABILIFY [Suspect]
     Active Substance: ARIPIPRAZOLE
     Dosage: 24 MG, QD
     Route: 048
     Dates: start: 20080509, end: 20080717
  12. MUCOSTA TABLETS 100MG [Concomitant]
     Active Substance: REBAMIPIDE
     Indication: ABDOMINAL PAIN
     Dosage: 100 MG, TID
     Route: 048
     Dates: start: 20100525

REACTIONS (5)
  - Blood pressure increased [Recovered/Resolved]
  - Hydronephrosis [Recovered/Resolved]
  - Dizziness [Recovered/Resolved]
  - Headache [Recovered/Resolved]
  - Gaze palsy [Recovered/Resolved]

NARRATIVE: CASE EVENT DATE: 20100829
